FAERS Safety Report 9291781 (Version 1)
Quarter: 2013Q2

REPORT INFORMATION
  Report Type: Spontaneous
  Country: US (occurrence: US)
  Receive Date: 20130516
  Receipt Date: 20130516
  Transmission Date: 20140414
  Serious: Yes (Hospitalization, Other)
  Sender: FDA-Public Use
  Company Number: US-BIOGENIDEC-2013BI027387

PATIENT
  Age: 36 Year
  Sex: Female

DRUGS (8)
  1. AVONEX [Suspect]
     Indication: MULTIPLE SCLEROSIS
     Route: 030
  2. AVONEX [Suspect]
     Indication: MULTIPLE SCLEROSIS
     Route: 030
     Dates: start: 20120601, end: 201301
  3. AVONEX [Suspect]
     Indication: MULTIPLE SCLEROSIS
     Route: 030
     Dates: start: 201302
  4. ZOLOFT [Concomitant]
  5. TOPIRAMATE [Concomitant]
  6. XANAX [Concomitant]
  7. STEROIDS (NOS) [Concomitant]
     Route: 042
  8. STEROIDS (NOS) [Concomitant]
     Route: 048

REACTIONS (6)
  - Hysterectomy [Unknown]
  - Central nervous system lesion [Unknown]
  - Migraine [Recovered/Resolved]
  - Cystitis [Recovered/Resolved with Sequelae]
  - Influenza like illness [Recovered/Resolved with Sequelae]
  - Pain [Recovered/Resolved with Sequelae]
